FAERS Safety Report 10368143 (Version 5)
Quarter: 2016Q4

REPORT INFORMATION
  Report Type: Spontaneous
  Country: JP (occurrence: JP)
  Receive Date: 20140807
  Receipt Date: 20161227
  Transmission Date: 20170206
  Serious: Yes (Death, Other)
  Sender: FDA-Public Use
  Company Number: JP-OTSUKA-JP-2014-15875

PATIENT
  Age: 25 Day
  Sex: Male

DRUGS (14)
  1. SAMSCA [Suspect]
     Active Substance: TOLVAPTAN
     Dosage: 1 MG, QD
     Route: 048
     Dates: start: 20140714, end: 20140717
  2. PITRESSIN [Suspect]
     Active Substance: VASOPRESSIN
     Indication: BLOOD PRESSURE DECREASED
     Dosage: 0.001-0.004 UNITS/KG/MIN
     Route: 041
     Dates: start: 20140714, end: 20140719
  3. SOLU-CORTEF [Concomitant]
     Active Substance: HYDROCORTISONE SODIUM SUCCINATE
     Indication: PRODUCT USED FOR UNKNOWN INDICATION
     Dosage: 9-15 MG/KG, DAILY DOSE
     Route: 042
     Dates: start: 20140714, end: 20140719
  4. SAMSCA [Suspect]
     Active Substance: TOLVAPTAN
     Dosage: 0.3 MG, QD
     Route: 048
     Dates: start: 20140711, end: 20140712
  5. SAMSCA [Suspect]
     Active Substance: TOLVAPTAN
     Dosage: 5 MG, QD
     Route: 048
     Dates: start: 20140718, end: 20140719
  6. SAMSCA [Suspect]
     Active Substance: TOLVAPTAN
     Dosage: 0.75 MG, QD
     Route: 048
     Dates: start: 20140713, end: 20140713
  7. LASIX M [Suspect]
     Active Substance: FUROSEMIDE
     Indication: ANURIA
     Dosage: 1-16 MG/KG, DAILY DOSE
     Route: 041
     Dates: start: 20140623, end: 20140719
  8. SANDOSTATIN [Concomitant]
     Active Substance: OCTREOTIDE ACETATE
     Indication: PLEURAL EFFUSION
     Dosage: 2-10 MCG/KG/MIN
     Route: 041
     Dates: start: 20140623, end: 20140716
  9. LASIX M [Suspect]
     Active Substance: FUROSEMIDE
     Indication: CARDIAC FAILURE CONGESTIVE
  10. PROSTAGLANDIN E1 [Concomitant]
     Active Substance: ALPROSTADIL
     Indication: PULMONARY ARTERY ATRESIA
     Dosage: 100-200 NG/KG/MIN
     Route: 041
     Dates: start: 20140620, end: 20140719
  11. SAMSCA [Suspect]
     Active Substance: TOLVAPTAN
     Indication: OEDEMA DUE TO CARDIAC DISEASE
     Dosage: 0.25 MG, QD
     Route: 048
     Dates: start: 20140702, end: 20140708
  12. SAMSCA [Suspect]
     Active Substance: TOLVAPTAN
     Indication: ANURIA
     Dosage: 0.15 MG, QD
     Route: 048
     Dates: start: 20140709, end: 20140710
  13. MANNITOL. [Concomitant]
     Active Substance: MANNITOL
     Indication: ANURIA
     Dosage: UNK
     Route: 041
     Dates: start: 20140623, end: 20140719
  14. MANNITOL. [Concomitant]
     Active Substance: MANNITOL
     Indication: CARDIAC FAILURE CONGESTIVE

REACTIONS (4)
  - Hypotension [Not Recovered/Not Resolved]
  - Cardiac failure [Fatal]
  - Pulmonary hypertension [Fatal]
  - Off label use [Unknown]

NARRATIVE: CASE EVENT DATE: 20140715
